FAERS Safety Report 7512828-X (Version None)
Quarter: 2011Q2

REPORT INFORMATION
  Report Type: 
  Country: None (occurrence: None)
  Receive Date: 20110531
  Receipt Date: 20110517
  Transmission Date: 20111010
  Serious: Yes (Hospitalization, Other)
  Sender: FDA-Public Use
  Company Number: AT-ELI_LILLY_AND_COMPANY-AT201105005586

PATIENT
  Age: 22 Year
  Sex: Male

DRUGS (4)
  1. ALCOHOL [Concomitant]
  2. ZYPREXA [Suspect]
     Dosage: 10 MG, UNK
     Dates: start: 20110108, end: 20110108
  3. LORAZEPAM [Concomitant]
     Dosage: 5 MG, UNK
     Dates: start: 20110108, end: 20110108
  4. BENZODIAZEPINE DERIVATIVES [Concomitant]

REACTIONS (10)
  - DEPRESSED MOOD [None]
  - AGITATION [None]
  - DEPRESSED LEVEL OF CONSCIOUSNESS [None]
  - INTENTIONAL SELF-INJURY [None]
  - SUICIDAL BEHAVIOUR [None]
  - SEDATION [None]
  - RESPIRATORY DEPRESSION [None]
  - OXYGEN SATURATION DECREASED [None]
  - SELF INJURIOUS BEHAVIOUR [None]
  - BLOOD CREATINE PHOSPHOKINASE INCREASED [None]
